FAERS Safety Report 6204412-5 (Version None)
Quarter: 2009Q2

REPORT INFORMATION
  Report Type: 
  Country: None (occurrence: None)
  Receive Date: 20090527
  Receipt Date: 20090518
  Transmission Date: 20091009
  Serious: Yes (Hospitalization)
  Sender: FDA-Public Use
  Company Number: US-ELI_LILLY_AND_COMPANY-US200806002675

PATIENT
  Sex: Female

DRUGS (5)
  1. FORTEO [Suspect]
     Dates: start: 20080301, end: 20080424
  2. NORVASC [Concomitant]
  3. ATENOLOL [Concomitant]
  4. CALCIUM [Concomitant]
  5. CENTRUM SILVER [Concomitant]

REACTIONS (3)
  - CYSTITIS [None]
  - ELECTROLYTE IMBALANCE [None]
  - STRESS [None]
